FAERS Safety Report 17903123 (Version 1)
Quarter: 2020Q2

REPORT INFORMATION
  Report Type: Spontaneous
  Country: DE (occurrence: DE)
  Receive Date: 20200617
  Receipt Date: 20200617
  Transmission Date: 20200714
  Serious: Yes (Hospitalization)
  Sender: FDA-Public Use
  Company Number: DE-AUROBINDO-AUR-APL-2020-029049

PATIENT
  Age: 18 Year
  Sex: Male

DRUGS (2)
  1. PANTOPRAZOLE [Suspect]
     Active Substance: PANTOPRAZOLE
     Indication: PRODUCT USED FOR UNKNOWN INDICATION
     Dosage: 20 MILLIGRAM BEI BEDARF, TABLETTEN (IF NECESSARY, TABLETS)
     Route: 048
  2. YOMOGI [SACCHAROMYCES BOULARDII] [Suspect]
     Active Substance: SACCHAROMYCES CEREVISIAE
     Indication: PRODUCT USED FOR UNKNOWN INDICATION
     Dosage: 250 MILLIGRAM BEI BEDARF, KAPSELN (IF NECESSARY, CAPSULES)
     Route: 048

REACTIONS (2)
  - Sensation of foreign body [Recovered/Resolved]
  - Face oedema [Recovered/Resolved]
